FAERS Safety Report 9826899 (Version 1)
Quarter: 2014Q1

REPORT INFORMATION
  Report Type: Spontaneous
  Country: US (occurrence: US)
  Receive Date: 20140117
  Receipt Date: 20140117
  Transmission Date: 20141002
  Serious: No
  Sender: FDA-Public Use
  Company Number: US-GLAXOSMITHKLINE-A1014660A

PATIENT
  Age: 53 Year
  Sex: Female

DRUGS (2)
  1. PROMACTA [Suspect]
     Indication: IMMUNE THROMBOCYTOPENIC PURPURA
     Dosage: 25MG PER DAY
     Dates: start: 20130213, end: 20130220
  2. NO CONCURRENT MEDICATION [Concomitant]

REACTIONS (3)
  - Diarrhoea [Unknown]
  - Rash [Unknown]
  - Abdominal pain upper [Unknown]
